FAERS Safety Report 19157859 (Version 1)
Quarter: 2021Q2

REPORT INFORMATION
  Report Type: Report from Study
  Country: US (occurrence: US)
  Receive Date: 20210420
  Receipt Date: 20210420
  Transmission Date: 20210717
  Serious: Yes (Other)
  Sender: FDA-Public Use
  Company Number: NVSC2021US085989

PATIENT
  Sex: Female
  Weight: 124.85 kg

DRUGS (13)
  1. ATORVASTATIN [Concomitant]
     Active Substance: ATORVASTATIN
     Indication: PRODUCT USED FOR UNKNOWN INDICATION
     Dosage: 20 MG, QD
     Route: 048
     Dates: start: 2006
  2. DUREZOL [Suspect]
     Active Substance: DIFLUPREDNATE
     Dosage: 0.05 %, BID (TAKES ONE DROP IN THE RIGHT EYE TWICE A DAY ;ONGOING: YES)
     Route: 047
     Dates: start: 202010
  3. LORATADINE. [Concomitant]
     Active Substance: LORATADINE
     Indication: PRODUCT USED FOR UNKNOWN INDICATION
     Dosage: 10 MG, QD
     Route: 048
  4. TYLENOL [Concomitant]
     Active Substance: ACETAMINOPHEN
     Indication: PRODUCT USED FOR UNKNOWN INDICATION
     Route: 065
  5. COMBIGAN [Concomitant]
     Active Substance: BRIMONIDINE TARTRATE\TIMOLOL MALEATE
     Dosage: UNK, QD
     Route: 047
     Dates: start: 202010
  6. LUCENTIS [Suspect]
     Active Substance: RANIBIZUMAB
     Indication: DIABETIC RETINOPATHY
     Dosage: INJECTION EVERY 6 TO 8 WEEKS.
     Route: 065
  7. LEVOTHYROXINE. [Concomitant]
     Active Substance: LEVOTHYROXINE
     Indication: PRODUCT USED FOR UNKNOWN INDICATION
     Dosage: 100 UG, QD
     Route: 048
  8. MONTELUKAST [Concomitant]
     Active Substance: MONTELUKAST SODIUM
     Indication: PRODUCT USED FOR UNKNOWN INDICATION
     Dosage: 10 MG, QD
     Route: 048
     Dates: start: 202103
  9. AVASTIN [Suspect]
     Active Substance: BEVACIZUMAB
     Indication: DIABETIC RETINOPATHY
     Route: 065
  10. FAMOTIDINE. [Concomitant]
     Active Substance: FAMOTIDINE
     Indication: PRODUCT USED FOR UNKNOWN INDICATION
     Dosage: 20 MG, BID
     Route: 048
     Dates: start: 2020
  11. DUREZOL [Suspect]
     Active Substance: DIFLUPREDNATE
     Indication: INFLAMMATION
     Dosage: 0.05 % (ADMINISTERING IT IN THE LEFT EYE;ONGOING: NO)
     Route: 047
     Dates: start: 2020, end: 2020
  12. BENADRYL [Concomitant]
     Active Substance: DIPHENHYDRAMINE HYDROCHLORIDE
     Indication: PRODUCT USED FOR UNKNOWN INDICATION
     Dosage: UNK UNK, QD
     Route: 065
     Dates: start: 2011
  13. COMBIGAN [Concomitant]
     Active Substance: BRIMONIDINE TARTRATE\TIMOLOL MALEATE
     Indication: PRODUCT USED FOR UNKNOWN INDICATION
     Dosage: 0.2 %/0.5% ;ONGOING: NO
     Route: 047
     Dates: start: 2020, end: 2020

REACTIONS (8)
  - Food poisoning [Recovered/Resolved]
  - Off label use [Unknown]
  - Vitreous haemorrhage [Recovering/Resolving]
  - Blood glucose increased [Recovered/Resolved]
  - Intraocular pressure increased [Recovered/Resolved]
  - Retinopathy [Unknown]
  - Vitritis [Recovered/Resolved]
  - Blindness [Recovering/Resolving]

NARRATIVE: CASE EVENT DATE: 2020
